FAERS Safety Report 4409571-2 (Version None)
Quarter: 2004Q3

REPORT INFORMATION
  Report Type: 
  Country: None (occurrence: None)
  Receive Date: 20040726
  Receipt Date: 20040708
  Transmission Date: 20050211
  Serious: Yes (Life-Threatening)
  Sender: FDA-Public Use
  Company Number: A06200400203

PATIENT
  Age: 75 Year
  Sex: Male

DRUGS (2)
  1. XATRAL - (ALFUZOSIN) - TABLET - 2.5 MG [Suspect]
     Indication: BENIGN PROSTATIC HYPERPLASIA
     Dosage: 5 MG ONCE; ORAL
     Route: 048
     Dates: start: 20040630, end: 20040630
  2. GLIBOMET (GLIBENCLAMIDE + METFORMIN) [Concomitant]

REACTIONS (1)
  - ANAPHYLACTIC REACTION [None]
